FAERS Safety Report 16007554 (Version 2)
Quarter: 2019Q1

REPORT INFORMATION
  Report Type: Report from Study
  Country: IT (occurrence: IT)
  Receive Date: 20190226
  Receipt Date: 20190301
  Transmission Date: 20190418
  Serious: Yes (Other)
  Sender: FDA-Public Use
  Company Number: IT-JNJFOC-20190233882

PATIENT
  Age: 80 Year
  Sex: Male

DRUGS (4)
  1. XARELTO [Suspect]
     Active Substance: RIVAROXABAN
     Indication: HYPERTENSIVE HEART DISEASE
     Route: 048
  2. ZYLORIC [Concomitant]
     Active Substance: ALLOPURINOL
     Route: 065
  3. SOTALEX [Concomitant]
     Active Substance: SOTALOL
     Indication: HYPERTENSIVE HEART DISEASE
     Route: 065
  4. TAMLIC [Concomitant]
     Indication: BENIGN PROSTATIC HYPERPLASIA
     Route: 065

REACTIONS (4)
  - Syncope [Recovering/Resolving]
  - Epistaxis [Recovering/Resolving]
  - Hypotension [Recovering/Resolving]
  - Bladder sphincter atony [Recovering/Resolving]

NARRATIVE: CASE EVENT DATE: 20190117
